FAERS Safety Report 13091375 (Version 2)
Quarter: 2017Q1

REPORT INFORMATION
  Report Type: Spontaneous
  Country: US (occurrence: US)
  Receive Date: 20170106
  Receipt Date: 20170118
  Transmission Date: 20170428
  Serious: Yes (Other)
  Sender: FDA-Public Use
  Company Number: PHEH2017US000627

PATIENT
  Age: 77 Year
  Sex: Male
  Weight: 84.35 kg

DRUGS (1)
  1. ENTRESTO [Suspect]
     Active Substance: SACUBITRIL\VALSARTAN
     Indication: CARDIAC FAILURE
     Dosage: 50 MG, BID
     Route: 048
     Dates: start: 20161031, end: 20161121

REACTIONS (5)
  - Mouth swelling [Unknown]
  - Swollen tongue [Unknown]
  - Angioedema [Recovered/Resolved]
  - Dysphagia [Unknown]
  - Paraesthesia oral [Unknown]

NARRATIVE: CASE EVENT DATE: 20161114
